FAERS Safety Report 22537110 (Version 2)
Quarter: 2023Q2

REPORT INFORMATION
  Report Type: Spontaneous
  Country: US (occurrence: US)
  Receive Date: 20230608
  Receipt Date: 20230621
  Transmission Date: 20230721
  Serious: No
  Sender: FDA-Public Use
  Company Number: US-JNJFOC-20230614136

PATIENT
  Age: 69 Year
  Sex: Female
  Weight: 120.2 kg

DRUGS (1)
  1. SIMPONI ARIA [Suspect]
     Active Substance: GOLIMUMAB
     Indication: Product used for unknown indication
     Route: 041

REACTIONS (2)
  - Product dose omission issue [Unknown]
  - Vascular access complication [Recovered/Resolved]

NARRATIVE: CASE EVENT DATE: 20230606
